FAERS Safety Report 23920172 (Version 1)
Quarter: 2024Q2

REPORT INFORMATION
  Report Type: Spontaneous
  Country: US (occurrence: None)
  Receive Date: 20240530
  Receipt Date: 20240530
  Transmission Date: 20240716
  Serious: No
  Sender: FDA-Public Use
  Company Number: None

PATIENT

DRUGS (1)
  1. NITROFURANTOIN [Suspect]
     Active Substance: NITROFURANTOIN

REACTIONS (5)
  - Interstitial lung disease [None]
  - Therapy cessation [None]
  - Fall [None]
  - Oxygen saturation decreased [None]
  - Multiple-drug resistance [None]

NARRATIVE: CASE EVENT DATE: 20240131
